FAERS Safety Report 6349120-5 (Version None)
Quarter: 2009Q3

REPORT INFORMATION
  Report Type: 
  Country: None (occurrence: None)
  Receive Date: 20090911
  Receipt Date: 20090901
  Transmission Date: 20100115
  Serious: Yes (Hospitalization)
  Sender: FDA-Public Use
  Company Number: GR-ELI_LILLY_AND_COMPANY-GR200909000483

PATIENT
  Age: 52 Year
  Sex: Female
  Weight: 75 kg

DRUGS (5)
  1. CECLOR [Suspect]
     Indication: RESPIRATORY TRACT INFECTION
     Dosage: 750 MG, 2/D
     Route: 048
     Dates: start: 20090501, end: 20090501
  2. MESULID [Concomitant]
     Indication: BACK PAIN
     Dosage: 1 D/F, DAILY (1/D)
     Route: 048
     Dates: start: 20090430, end: 20090501
  3. INEGY [Concomitant]
     Indication: DYSLIPIDAEMIA
     Dosage: 10 MG, DAILY (1/D)
     Route: 048
     Dates: start: 20090228
  4. XANAX [Concomitant]
     Indication: ANXIETY DISORDER
     Dosage: 0.5 D/F, DAILY (1/D)
     Route: 048
     Dates: start: 20080901
  5. NORGESIC /00070401/ [Concomitant]
     Indication: BACK PAIN
     Dosage: 1 D/F, 2/D
     Route: 048
     Dates: start: 20090427, end: 20090501

REACTIONS (4)
  - BLOOD PRESSURE DECREASED [None]
  - BRONCHOSPASM [None]
  - DRUG ERUPTION [None]
  - ERYTHEMA [None]
